FAERS Safety Report 4642515-7 (Version None)
Quarter: 2005Q2

REPORT INFORMATION
  Report Type: 
  Country: None (occurrence: None)
  Receive Date: 20050420
  Receipt Date: 20050420
  Transmission Date: 20051028
  Serious: No
  Sender: FDA-Public Use
  Company Number: None

PATIENT
  Sex: Male
  Weight: 76.2 kg

DRUGS (1)
  1. INTERFERON ALFA-2B [Suspect]
     Dosage: 38 MU IV X 20 DOSES
     Route: 042
     Dates: start: 20050207

REACTIONS (2)
  - BLOOD CREATINE PHOSPHOKINASE INCREASED [None]
  - MYOCARDIAL INFARCTION [None]
